FAERS Safety Report 9416228 (Version 1)
Quarter: 2013Q3

REPORT INFORMATION
  Report Type: Spontaneous
  Country: CA (occurrence: None)
  Receive Date: 20130718
  Receipt Date: 20130718
  Transmission Date: 20140515
  Serious: Yes (Other)
  Sender: FDA-Public Use
  Company Number: SYM-2013-06305

PATIENT
  Sex: 0

DRUGS (5)
  1. FLUOROURACIL [Suspect]
     Indication: BREAST CANCER
     Dosage: EVERY THREE WEEKS
  2. EPIRUBICIN [Suspect]
     Indication: BREAST CANCER
     Dosage: EVERY THREE WEEKS
  3. CYCLOPHOSPHAMIDE [Suspect]
     Indication: BREAST CANCER
     Dosage: EVERY THREE WEEKS
  4. DOCETAXEL [Suspect]
     Indication: BREAST CANCER
  5. THERAPEUTIC RADIOPHARMACEUTICALS [Suspect]
     Indication: BREAST CANCER

REACTIONS (1)
  - Pneumonitis [None]
